FAERS Safety Report 5136911-1 (Version None)
Quarter: 2006Q4

REPORT INFORMATION
  Report Type: 
  Country: None (occurrence: None)
  Receive Date: 20061023
  Receipt Date: 20061011
  Transmission Date: 20070319
  Serious: Yes (Other)
  Sender: FDA-Public Use
  Company Number: 2006111115

PATIENT
  Sex: Female

DRUGS (2)
  1. LIPITOR [Suspect]
     Indication: DYSLIPIDAEMIA
     Dosage: 40 MG, (40 MG, 1 IN 1 D), ORAL
     Route: 048
     Dates: start: 20050901
  2. ENALAPRIL MALEATE [Concomitant]

REACTIONS (8)
  - BLOOD PRESSURE DECREASED [None]
  - CALCULUS BLADDER [None]
  - CHOLELITHIASIS [None]
  - DIARRHOEA [None]
  - DIZZINESS [None]
  - FEELING ABNORMAL [None]
  - HYPERTENSION [None]
  - VOMITING [None]
